FAERS Safety Report 5926964-2 (Version None)
Quarter: 2008Q4

REPORT INFORMATION
  Report Type: 
  Country: None (occurrence: None)
  Receive Date: 20081022
  Receipt Date: 20081015
  Transmission Date: 20090506
  Serious: Yes (Hospitalization)
  Sender: FDA-Public Use
  Company Number: JP-EISAI MEDICAL RESEARCH-E2020-03529-SPO-JP

PATIENT
  Age: 80 Year
  Sex: Female

DRUGS (3)
  1. ARICEPT [Suspect]
     Indication: DEMENTIA ALZHEIMER'S TYPE
     Route: 048
     Dates: end: 20080207
  2. ARICEPT [Suspect]
     Route: 048
     Dates: start: 20080208, end: 20080215
  3. LULLAN [Concomitant]
     Route: 048
     Dates: end: 20080215

REACTIONS (1)
  - DELIRIUM [None]
